FAERS Safety Report 12705316 (Version 1)
Quarter: 2016Q3

REPORT INFORMATION
  Report Type: Spontaneous
  Country: US (occurrence: None)
  Receive Date: 20160831
  Receipt Date: 20160831
  Transmission Date: 20161109
  Serious: No
  Sender: FDA-Public Use
  Company Number: None

PATIENT
  Age: 61 Year
  Sex: Male

DRUGS (1)
  1. RIBASPHERE RIBAPAK [Suspect]
     Active Substance: RIBAVIRIN

REACTIONS (3)
  - Hepatic enzyme increased [None]
  - Neoplasm malignant [None]
  - Drug dose omission [None]

NARRATIVE: CASE EVENT DATE: 20160830
